FAERS Safety Report 22006357 (Version 2)
Quarter: 2024Q3

REPORT INFORMATION
  Report Type: Report from Study
  Country: IT (occurrence: IT)
  Receive Date: 20230217
  Receipt Date: 20240715
  Transmission Date: 20241017
  Serious: Yes (Hospitalization, Other)
  Sender: TEVA
  Company Number: None

PATIENT
  Age: 12 Year
  Sex: Male
  Weight: 33 kg

DRUGS (5)
  1. VINCRISTINE [Suspect]
     Active Substance: VINCRISTINE
     Indication: Hodgkin^s disease
     Dosage: DOSAGE TEXT: 1.67 MG/DAY IV ON 02 AND 09/01/23, VINCRISTINA TEVA ITALY
     Route: 042
     Dates: start: 20230102, end: 20230109
  2. PREDNISONE [Concomitant]
     Active Substance: PREDNISONE
     Indication: Hodgkin^s disease
     Dosage: 65 MG/DAY (DIVIDED INTO 3 DOSES OF 25 MG + 3 X 5 MG + 25 MG) FROM DAY 02 TO DAY 15/01/23
     Route: 048
     Dates: start: 20230102, end: 20230115
  3. ETOPOSIDE [Suspect]
     Active Substance: ETOPOSIDE
     Indication: Hodgkin^s disease
     Dosage: 143 MG/DAY FROM DAY 02 TO DAY 06/01/23
     Route: 042
     Dates: start: 20230102, end: 20230106
  4. OMEPRAZOLE [Concomitant]
     Active Substance: OMEPRAZOLE
     Indication: Product used for unknown indication
     Dosage: 20 MG/DAY
     Route: 048
     Dates: start: 20230102, end: 20230115
  5. DOXORUBICIN HYDROCHLORIDE [Suspect]
     Active Substance: DOXORUBICIN HYDROCHLORIDE
     Indication: Hodgkin^s disease
     Dosage: DOXORUBICIN ACCORD HEALTHCARE ITALIA
     Route: 042
     Dates: start: 20230109, end: 20230109

REACTIONS (3)
  - Febrile neutropenia [Recovered/Resolved]
  - Anaemia [Not Recovered/Not Resolved]
  - Leukopenia [Recovering/Resolving]

NARRATIVE: CASE EVENT DATE: 20230115
